FAERS Safety Report 16427522 (Version 5)
Quarter: 2020Q4

REPORT INFORMATION
  Report Type: Report from Study
  Country: GB (occurrence: GB)
  Receive Date: 20190613
  Receipt Date: 20201210
  Transmission Date: 20210113
  Serious: Yes (Other)
  Sender: FDA-Public Use
  Company Number: PHHY2019GB135088

PATIENT
  Age: 49 Year
  Sex: Male

DRUGS (2)
  1. COSENTYX [Suspect]
     Active Substance: SECUKINUMAB
     Dosage: 150 MG, UNKNOWN
     Route: 065
     Dates: start: 20171023, end: 20190406
  2. COSENTYX [Suspect]
     Active Substance: SECUKINUMAB
     Indication: ANKYLOSING SPONDYLITIS
     Dosage: 150 MG, UNKNOWN
     Route: 065
     Dates: start: 20171001, end: 20171022

REACTIONS (5)
  - Swelling face [Unknown]
  - Cellulitis [Recovered/Resolved]
  - Erythema [Unknown]
  - Fungal skin infection [Unknown]
  - Ear infection fungal [Recovered/Resolved]

NARRATIVE: CASE EVENT DATE: 20190406
